FAERS Safety Report 26149635 (Version 1)
Quarter: 2025Q4

REPORT INFORMATION
  Report Type: Spontaneous
  Country: US (occurrence: None)
  Receive Date: 20251211
  Receipt Date: 20251211
  Transmission Date: 20260117
  Serious: Yes (Hospitalization)
  Sender: FDA-CTU
  Company Number: None

PATIENT
  Sex: Male

DRUGS (1)
  1. FULPHILA [Suspect]
     Active Substance: PEGFILGRASTIM-JMDB
     Indication: Agranulocytosis
     Dosage: OTHER FREQUENCY : EVERY 21 DAYS;
     Route: 058
     Dates: start: 20251114

REACTIONS (3)
  - Abdominal pain upper [None]
  - Vomiting [None]
  - Dehydration [None]
